FAERS Safety Report 9450294 (Version 2)
Quarter: 2013Q3

REPORT INFORMATION
  Report Type: Spontaneous
  Country: US (occurrence: US)
  Receive Date: 20130809
  Receipt Date: 20130905
  Transmission Date: 20140515
  Serious: Yes (Death, Hospitalization)
  Sender: FDA-Public Use
  Company Number: US-BAXTER-2013BAX031080

PATIENT
  Age: 74 Year
  Sex: Female

DRUGS (1)
  1. DIANEAL LOW CALCIUM [Suspect]
     Indication: PERITONEAL DIALYSIS
     Route: 033
     Dates: end: 20130828

REACTIONS (5)
  - Renal failure chronic [Fatal]
  - Malnutrition [Recovering/Resolving]
  - Dementia [Unknown]
  - Failure to thrive [Unknown]
  - Dehydration [Recovering/Resolving]
